FAERS Safety Report 8796754 (Version 3)
Quarter: 2013Q1

REPORT INFORMATION
  Report Type: Spontaneous
  Country: US (occurrence: US)
  Receive Date: 20120919
  Receipt Date: 20130307
  Transmission Date: 20140127
  Serious: Yes (Hospitalization, Disabling, Other)
  Sender: FDA-Public Use
  Company Number: US-009507513-1209USA004267

PATIENT
  Sex: Female
  Weight: 63.49 kg

DRUGS (1)
  1. NUVARING [Suspect]
     Indication: CONTRACEPTION
     Dosage: UNK
     Route: 067
     Dates: start: 200802, end: 20100904

REACTIONS (10)
  - Pulmonary infarction [Unknown]
  - Pulmonary embolism [Unknown]
  - Coagulopathy [Unknown]
  - Asthma [Not Recovered/Not Resolved]
  - Dysmenorrhoea [Unknown]
  - Disease complication [Unknown]
  - Tonsillectomy [Unknown]
  - Gastrooesophageal reflux disease [Unknown]
  - Constipation [Unknown]
  - Urinary tract infection [Unknown]
